FAERS Safety Report 6529040-3 (Version None)
Quarter: 2009Q4

REPORT INFORMATION
  Report Type: 
  Country: None (occurrence: None)
  Receive Date: 20091231
  Receipt Date: 20091225
  Transmission Date: 20100525
  Serious: No
  Sender: FDA-Public Use
  Company Number: 2006SP007731

PATIENT
  Age: 56 Year
  Sex: Male
  Weight: 65 kg

DRUGS (9)
  1. TEMODAL [Suspect]
     Indication: GLIOBLASTOMA MULTIFORME
     Dosage: 75 MG/M2;QD;PO; 150 MG/M2;QD;PO; 200 MG/M2;QD;PO; 200 MG/M2;QD;PO; 200 MG/M2;QD;PO
     Route: 048
     Dates: start: 20061030, end: 20061122
  2. TEMODAL [Suspect]
     Indication: GLIOBLASTOMA MULTIFORME
     Dosage: 75 MG/M2;QD;PO; 150 MG/M2;QD;PO; 200 MG/M2;QD;PO; 200 MG/M2;QD;PO; 200 MG/M2;QD;PO
     Route: 048
     Dates: start: 20070110, end: 20070114
  3. TEMODAL [Suspect]
     Indication: GLIOBLASTOMA MULTIFORME
     Dosage: 75 MG/M2;QD;PO; 150 MG/M2;QD;PO; 200 MG/M2;QD;PO; 200 MG/M2;QD;PO; 200 MG/M2;QD;PO
     Route: 048
     Dates: start: 20070207, end: 20070211
  4. TEMODAL [Suspect]
     Indication: GLIOBLASTOMA MULTIFORME
     Dosage: 75 MG/M2;QD;PO; 150 MG/M2;QD;PO; 200 MG/M2;QD;PO; 200 MG/M2;QD;PO; 200 MG/M2;QD;PO
     Route: 048
     Dates: start: 20070307, end: 20070311
  5. TEMODAL [Suspect]
     Indication: GLIOBLASTOMA MULTIFORME
     Dosage: 75 MG/M2;QD;PO; 150 MG/M2;QD;PO; 200 MG/M2;QD;PO; 200 MG/M2;QD;PO; 200 MG/M2;QD;PO
     Route: 048
     Dates: start: 20070404, end: 20070408
  6. NAVOBAN (CON.) [Concomitant]
  7. GASTER D (CON.) [Concomitant]
  8. DEPAKENE-R (CON.) [Concomitant]
  9. HYDANTOL (CON.) [Concomitant]

REACTIONS (3)
  - ALANINE AMINOTRANSFERASE INCREASED [None]
  - ASPARTATE AMINOTRANSFERASE INCREASED [None]
  - HEPATIC FUNCTION ABNORMAL [None]
